FAERS Safety Report 5443774-3 (Version None)
Quarter: 2007Q3

REPORT INFORMATION
  Report Type: 
  Country: None (occurrence: None)
  Receive Date: 20070905
  Receipt Date: 20070123
  Transmission Date: 20080115
  Serious: Yes (Death, Hospitalization)
  Sender: FDA-Public Use
  Company Number: AU-PFIZER INC-2007072221

PATIENT
  Sex: Female

DRUGS (6)
  1. REVATIO [Suspect]
     Indication: PULMONARY HYPERTENSION
  2. REVATIO [Suspect]
     Indication: SCLERODERMA
  3. OXYGEN [Concomitant]
  4. CALCIUM CHANNEL BLOCKERS [Concomitant]
  5. WARFARIN SODIUM [Concomitant]
  6. ILOPROST [Concomitant]

REACTIONS (2)
  - CARDIAC FAILURE [None]
  - DEATH [None]
